FAERS Safety Report 5547350-3 (Version None)
Quarter: 2007Q4

REPORT INFORMATION
  Report Type: 
  Country: None (occurrence: None)
  Receive Date: 20071211
  Receipt Date: 20071129
  Transmission Date: 20080405
  Serious: Yes (Other)
  Sender: FDA-Public Use
  Company Number: US-PFIZER INC-2007102008

PATIENT
  Sex: Male
  Weight: 61.363 kg

DRUGS (8)
  1. CHANTIX [Suspect]
     Indication: SMOKING CESSATION THERAPY
     Route: 048
  2. LISINOPRIL [Concomitant]
  3. AMBIEN [Concomitant]
  4. ZETIA [Concomitant]
  5. DARVON [Concomitant]
  6. NEURONTIN [Concomitant]
  7. SPIRIVA [Concomitant]
  8. ALL OTHER THERAPEUTIC PRODUCTS [Concomitant]

REACTIONS (3)
  - DYSPNOEA [None]
  - PROSTATE CANCER [None]
  - PROSTATE CANCER METASTATIC [None]
